FAERS Safety Report 6157597-3 (Version None)
Quarter: 2009Q2

REPORT INFORMATION
  Report Type: 
  Country: None (occurrence: None)
  Receive Date: 20090416
  Receipt Date: 20090408
  Transmission Date: 20091009
  Serious: Yes (Hospitalization)
  Sender: FDA-Public Use
  Company Number: JP-WATSON-2009-02079

PATIENT
  Sex: Male

DRUGS (14)
  1. RAPAFLO [Suspect]
     Indication: BENIGN PROSTATIC HYPERPLASIA
     Dosage: 4 MG, BID
     Route: 048
     Dates: start: 20090226, end: 20090320
  2. RAPAFLO [Suspect]
     Dosage: 4 MG, BID
     Route: 048
     Dates: start: 20090223, end: 20090223
  3. ALLORINE [Suspect]
     Indication: HYPERURICAEMIA
     Dosage: 100 MG, DAILY
     Route: 048
     Dates: start: 20090106, end: 20090320
  4. RIMATIL [Suspect]
     Indication: MUSCULOSKELETAL PAIN
     Dosage: 200 MG, DAILY
     Route: 048
     Dates: start: 20090313, end: 20090320
  5. CELECOXIB [Suspect]
     Indication: MUSCULOSKELETAL PAIN
     Dosage: 200 MG, DAILY
     Route: 048
     Dates: start: 20090313, end: 20090320
  6. PLAVIX [Concomitant]
     Indication: CEREBRAL INFARCTION
     Dosage: 75 MG, DAILY
     Route: 048
  7. MICARDIS [Concomitant]
     Indication: HYPERTENSION
     Dosage: 40 MG, DAILY
     Route: 048
  8. AMLODIPINE BESYLATE [Concomitant]
     Indication: HYPERTENSION
     Dosage: 10 MG, DAILY
     Route: 048
  9. ALOSENN                            /00476901/ [Concomitant]
     Indication: CONSTIPATION
     Dosage: AD LIBITUM/ TAKEN AS NEEDED
     Route: 048
  10. MYSLEE [Concomitant]
     Indication: INSOMNIA
     Dosage: UNK
     Route: 048
  11. DOPS [Concomitant]
     Indication: PARKINSON'S DISEASE
     Dosage: 300 MG, DAILY
     Route: 048
     Dates: end: 20090320
  12. PERSELIN [Concomitant]
     Indication: BENIGN PROSTATIC HYPERPLASIA
     Dosage: 50 MG, DAILY
     Route: 048
     Dates: start: 20090225, end: 20090320
  13. GASLON [Concomitant]
     Indication: GASTRITIS
     Dosage: 4 MG, DAILY
     Route: 048
     Dates: start: 20090313, end: 20090320
  14. GASTER D [Concomitant]
     Indication: GASTRIC ULCER
     Dosage: 40 MG, DAILY
     Route: 048

REACTIONS (14)
  - DIZZINESS [None]
  - DYSPHAGIA [None]
  - ERYTHEMA [None]
  - ERYTHEMA MULTIFORME [None]
  - GAIT DISTURBANCE [None]
  - HYPOAESTHESIA ORAL [None]
  - LIP PAIN [None]
  - LIP SWELLING [None]
  - MUCOSAL INFLAMMATION [None]
  - ORAL PAIN [None]
  - PRURITUS GENERALISED [None]
  - PYREXIA [None]
  - RASH [None]
  - SWELLING FACE [None]
